FAERS Safety Report 4474081-3 (Version None)
Quarter: 2004Q4

REPORT INFORMATION
  Report Type: 
  Country: None (occurrence: None)
  Receive Date: 20041014
  Receipt Date: 20041006
  Transmission Date: 20050328
  Serious: Yes (Hospitalization)
  Sender: FDA-Public Use
  Company Number: US-JNJFOC-20040504631

PATIENT
  Sex: Male

DRUGS (5)
  1. DURAGESIC [Suspect]
     Route: 062
     Dates: start: 20010101
  2. DURAGESIC [Suspect]
     Route: 062
     Dates: start: 20010101
  3. PLAVIX [Concomitant]
     Indication: DRUG USE FOR UNKNOWN INDICATION
     Route: 049
  4. AMBIEN [Concomitant]
     Indication: SLEEP DISORDER THERAPY
     Route: 049
  5. DILAUDID [Concomitant]
     Indication: PAIN

REACTIONS (6)
  - CHOLECYSTECTOMY [None]
  - EUPHORIC MOOD [None]
  - FATIGUE [None]
  - INSOMNIA [None]
  - MANIA [None]
  - PHARMACEUTICAL PRODUCT COMPLAINT [None]
